FAERS Safety Report 16564475 (Version 1)
Quarter: 2019Q3

REPORT INFORMATION
  Report Type: Spontaneous
  Country: US (occurrence: US)
  Receive Date: 20190711
  Receipt Date: 20190711
  Transmission Date: 20191004
  Serious: No
  Sender: FDA-Public Use
  Company Number: None

PATIENT
  Sex: Male

DRUGS (2)
  1. NASACORT [Suspect]
     Active Substance: TRIAMCINOLONE ACETONIDE
  2. FLUNISOLIDE 25 MCG [Suspect]
     Active Substance: FLUNISOLIDE

REACTIONS (2)
  - Drug ineffective [None]
  - Epistaxis [None]
